FAERS Safety Report 5086096-5 (Version None)
Quarter: 2006Q3

REPORT INFORMATION
  Report Type: 
  Country: None (occurrence: None)
  Receive Date: 20060818
  Receipt Date: 20060808
  Transmission Date: 20061208
  Serious: Yes (Other)
  Sender: FDA-Public Use
  Company Number: 2006-07-1157

PATIENT
  Age: 5 Year
  Sex: Male
  Weight: 23 kg

DRUGS (3)
  1. RINDERON-VG OINTMENT [Suspect]
     Indication: IMPETIGO
     Dosage: TOPICAL
     Route: 061
     Dates: start: 20050531
  2. RINDERON-VG OINTMENT [Suspect]
     Indication: IMPETIGO
     Dosage: TOPICAL
     Route: 061
     Dates: start: 20050602
  3. GENTAMICIN SULFATE [Suspect]
     Indication: IMPETIGO
     Dosage: TOPICAL
     Route: 061
     Dates: start: 20050602

REACTIONS (3)
  - CIRCULATORY COLLAPSE [None]
  - LETHARGY [None]
  - PALLOR [None]
